FAERS Safety Report 9168075 (Version 1)
Quarter: 2013Q1

REPORT INFORMATION
  Report Type: Report from Study
  Country: FR (occurrence: FR)
  Receive Date: 20130318
  Receipt Date: 20130318
  Transmission Date: 20140127
  Serious: Yes (Other)
  Sender: FDA-Public Use
  Company Number: FR-009507513-1303FRA005578

PATIENT
  Age: 46 Year
  Sex: Male
  Weight: 85 kg

DRUGS (9)
  1. RALTEGRAVIR POTASSIUM [Suspect]
     Indication: HIV INFECTION
     Dosage: 400 MG, BID
     Route: 048
     Dates: start: 20100429, end: 20110630
  2. ATRIPLA [Suspect]
     Dosage: UNK
     Route: 048
     Dates: end: 20111216
  3. SUSTIVA [Suspect]
     Indication: HIV INFECTION
     Dosage: 600 MG, QD
     Route: 048
     Dates: start: 20020107, end: 20111216
  4. VIREAD [Suspect]
     Indication: HIV INFECTION
     Dosage: 245 MG, QD
     Dates: start: 20050429, end: 20111216
  5. PLAVIX [Concomitant]
     Indication: MYOCARDIAL INFARCTION
     Dosage: UNK
     Dates: start: 20100120
  6. KARDEGIC [Concomitant]
     Indication: MYOCARDIAL INFARCTION
     Dosage: UNK
     Dates: start: 20100120
  7. TENORMINE [Concomitant]
     Indication: MYOCARDIAL INFARCTION
     Dosage: UNK
     Dates: start: 20100120
  8. KENZEN [Concomitant]
     Indication: HYPERTENSION
     Dosage: UNK
     Dates: start: 20060310
  9. TAHOR [Concomitant]
     Indication: MYOCARDIAL INFARCTION
     Dosage: UNK
     Dates: start: 20100120

REACTIONS (2)
  - Drug-induced liver injury [Recovered/Resolved]
  - Transaminases increased [Recovered/Resolved]
